FAERS Safety Report 8579175-9 (Version None)
Quarter: 2012Q3

REPORT INFORMATION
  Report Type: 
  Country: None (occurrence: None)
  Receive Date: 20120808
  Receipt Date: 20120802
  Transmission Date: 20120928
  Serious: No
  Sender: FDA-Public Use
  Company Number: US-PFIZER INC-2012189139

PATIENT
  Sex: Female

DRUGS (4)
  1. CALCIUM [Concomitant]
     Dosage: UNK
  2. MAGNESIUM [Concomitant]
     Dosage: UNK
  3. STRONTIUM [Concomitant]
     Dosage: UNK
  4. GABAPENTIN [Suspect]
     Dosage: UNK

REACTIONS (2)
  - OSTEOPOROSIS [None]
  - BONE SCAN ABNORMAL [None]
